FAERS Safety Report 25458926 (Version 3)
Quarter: 2025Q4

REPORT INFORMATION
  Report Type: Spontaneous
  Country: CA (occurrence: CA)
  Receive Date: 20250620
  Receipt Date: 20251022
  Transmission Date: 20260117
  Serious: Yes (Hospitalization, Other)
  Sender: CELLTRION
  Company Number: CA-PFIZER INC-202500120403

PATIENT

DRUGS (18)
  1. INFLECTRA [Suspect]
     Active Substance: INFLIXIMAB-DYYB
     Indication: Crohn^s disease
     Dosage: 10 MG/KG, EVERY 8 WEEKS
     Route: 042
     Dates: start: 20250414
  2. INFLECTRA [Suspect]
     Active Substance: INFLIXIMAB-DYYB
     Dosage: 10 MG/KG, EVERY 8 WEEKS
     Route: 042
     Dates: start: 20250415
  3. INFLECTRA [Suspect]
     Active Substance: INFLIXIMAB-DYYB
     Dosage: 10 MG/KG (820 MG), 10 WEEKS AND 2 DAYS (EEVERY 8 WEEKS)
     Route: 042
     Dates: start: 20250626
  4. INFLECTRA [Suspect]
     Active Substance: INFLIXIMAB-DYYB
     Dosage: 770 MG,AFTER 15 WEEKS AND 5 DAYS(10MG/KG,EVERY 8 WEEKS)
     Route: 042
     Dates: start: 20251014
  5. INFLECTRA [Suspect]
     Active Substance: INFLIXIMAB-DYYB
     Dosage: 770 MG,AFTER 15 WEEKS AND 5 DAYS(10MG/KG,EVERY 8 WEEKS)
     Route: 042
     Dates: start: 20251014
  6. INFLECTRA [Suspect]
     Active Substance: INFLIXIMAB-DYYB
     Dosage: 770 MG,AFTER 15 WEEKS AND 5 DAYS(10MG/KG,EVERY 8 WEEKS)
     Route: 042
     Dates: start: 20251014
  7. INFLECTRA [Suspect]
     Active Substance: INFLIXIMAB-DYYB
     Dosage: 770 MG,AFTER 15 WEEKS AND 5 DAYS(10MG/KG,EVERY 8 WEEKS)
     Route: 042
     Dates: start: 20251014
  8. ALENDRONATE [Concomitant]
     Active Substance: ALENDRONATE SODIUM
     Dosage: 70 MG, 1X/DAY
     Route: 065
  9. CALCIUM CITRATE [Concomitant]
     Active Substance: CALCIUM CITRATE
     Dosage: 500 MG, 2X/DAY
     Route: 065
  10. CITALOPRAM [Concomitant]
     Active Substance: CITALOPRAM
     Dosage: 20 MG, 1X/DAY
     Route: 065
  11. ELIQUIS [Concomitant]
     Active Substance: APIXABAN
     Dosage: 5 MG, 2X/DAY
     Route: 065
  12. FAMOTIDINE [Concomitant]
     Active Substance: FAMOTIDINE
     Dosage: 20 MG, 2X/DAY
     Route: 065
  13. FUROSEMIDE [Concomitant]
     Active Substance: FUROSEMIDE
     Dosage: 20 MG, 2X/DAY
     Route: 065
  14. OXAZEPAM [Concomitant]
     Active Substance: OXAZEPAM
     Dosage: 15 MG, HS
     Route: 065
  15. PROPRANOLOL [Concomitant]
     Active Substance: PROPRANOLOL HYDROCHLORIDE
     Dosage: 20 MG, 1X/DAY
     Route: 065
  16. RABEPRAZOLE [Concomitant]
     Active Substance: RABEPRAZOLE
     Dosage: 20 MG, 1X/DAY
     Route: 065
  17. SPIROTON [Concomitant]
     Dosage: 25 MG, 1X/DAY, 0.5 CO
     Route: 065
  18. METHYLCOBALAMIN [Concomitant]
     Active Substance: METHYLCOBALAMIN
     Dosage: 1200 UG, 3X/WEEK
     Route: 048

REACTIONS (6)
  - Restless legs syndrome [Recovered/Resolved]
  - Syncope [Unknown]
  - Pruritus [Not Recovered/Not Resolved]
  - Arthralgia [Recovered/Resolved]
  - Faeces discoloured [Not Recovered/Not Resolved]
  - Inappropriate schedule of product administration [Unknown]

NARRATIVE: CASE EVENT DATE: 20250101
